FAERS Safety Report 9834259 (Version 3)
Quarter: 2014Q2

REPORT INFORMATION
  Report Type: Report from Study
  Country: DE (occurrence: DE)
  Receive Date: 20140115
  Receipt Date: 20140520
  Transmission Date: 20141212
  Serious: Yes (Hospitalization, Other)
  Sender: FDA-Public Use
  Company Number: DE-BAYER-2013-155336

PATIENT
  Age: 58 Year
  Sex: Male

DRUGS (7)
  1. BETAFERON [Suspect]
     Dosage: 250 MG, QOD
     Dates: start: 19990501, end: 201309
  2. JANUVIA [Suspect]
     Dosage: UNK
     Dates: start: 20130809, end: 201309
  3. METOPROLOL [Concomitant]
  4. PANTOZOL [Concomitant]
  5. FUROSEMID [Concomitant]
     Dosage: UNK
     Dates: start: 201308
  6. METFORMIN [Concomitant]
     Dosage: UNK
     Dates: start: 201210
  7. CLEXANE [Concomitant]
     Dosage: UNK
     Dates: start: 201308

REACTIONS (16)
  - Pancreatitis [Recovered/Resolved]
  - Cholecystitis [Recovered/Resolved]
  - Blood potassium decreased [Recovered/Resolved]
  - Atrial fibrillation [Recovered/Resolved]
  - Cardiac failure [Recovered/Resolved]
  - Oedema peripheral [Recovered/Resolved]
  - Pleural effusion [None]
  - Pulmonary embolism [None]
  - Venous thrombosis limb [None]
  - Hypocalcaemia [Recovered/Resolved]
  - Night sweats [None]
  - Dyspnoea [None]
  - Adrenal neoplasm [None]
  - Adrenal disorder [None]
  - Norepinephrine increased [None]
  - Lipase increased [None]
